FAERS Safety Report 25394029 (Version 3)
Quarter: 2025Q2

REPORT INFORMATION
  Report Type: Spontaneous
  Country: SE (occurrence: SE)
  Receive Date: 20250604
  Receipt Date: 20250625
  Transmission Date: 20250717
  Serious: Yes (Other)
  Sender: RANBAXY
  Company Number: SE-SUN PHARMACEUTICAL INDUSTRIES INC-2025R1-510633

PATIENT
  Sex: Female

DRUGS (1)
  1. ERGOCALCIFEROL [Suspect]
     Active Substance: ERGOCALCIFEROL
     Indication: Rickets
     Dosage: 400 INTERNATIONAL UNIT, DAILY
     Route: 065

REACTIONS (2)
  - Hyperparathyroidism [Recovered/Resolved]
  - Drug resistance [Unknown]
